FAERS Safety Report 4727577-0 (Version None)
Quarter: 2005Q3

REPORT INFORMATION
  Report Type: 
  Country: None (occurrence: None)
  Receive Date: 20050727
  Receipt Date: 20050727
  Transmission Date: 20060218
  Serious: No
  Sender: FDA-Public Use
  Company Number: None

PATIENT
  Age: 68 Year
  Sex: Male

DRUGS (2)
  1. ZOMETA [Suspect]
     Indication: METASTASES TO BONE
     Dosage: 4 MG IV EVERY MONTH
     Route: 042
     Dates: start: 20020201, end: 20050101
  2. ZOMETA [Suspect]
     Indication: PROSTATE CANCER
     Dosage: 4 MG IV EVERY MONTH
     Route: 042
     Dates: start: 20020201, end: 20050101

REACTIONS (2)
  - OSTEOMYELITIS [None]
  - OSTEONECROSIS [None]
